FAERS Safety Report 8070426-6 (Version None)
Quarter: 2012Q1

REPORT INFORMATION
  Report Type: 
  Country: None (occurrence: None)
  Receive Date: 20120125
  Receipt Date: 20120119
  Transmission Date: 20120608
  Serious: Yes (Life-Threatening)
  Sender: FDA-Public Use
  Company Number: DE-BRISTOL-MYERS SQUIBB COMPANY-16362626

PATIENT
  Age: 54 Year
  Sex: Male
  Weight: 99 kg

DRUGS (7)
  1. CAPTOPRIL [Concomitant]
     Route: 048
  2. FUROSEMIDE [Concomitant]
     Route: 048
  3. METFORMIN HCL [Suspect]
     Indication: DIABETES MELLITUS
     Route: 048
     Dates: start: 19981101
  4. SOTALOL HCL [Concomitant]
     Indication: TACHYARRHYTHMIA
     Route: 048
  5. DIGOXIN [Concomitant]
     Indication: TACHYARRHYTHMIA
     Dosage: TABS
     Route: 048
  6. ADALAT [Concomitant]
     Indication: CORONARY ARTERY DISEASE
     Dosage: CAPS
     Route: 048
  7. ISOSORBIDE DINITRATE [Concomitant]
     Indication: CORONARY ARTERY DISEASE
     Dosage: 1DF=TABS

REACTIONS (7)
  - HYPERKALAEMIA [None]
  - LACTIC ACIDOSIS [None]
  - BLOOD CREATININE INCREASED [None]
  - BRADYCARDIA [None]
  - ARRHYTHMIA [None]
  - LUNG DISORDER [None]
  - RENAL FAILURE [None]
